FAERS Safety Report 8020263-3 (Version None)
Quarter: 2012Q1

REPORT INFORMATION
  Report Type: 
  Country: None (occurrence: None)
  Receive Date: 20120103
  Receipt Date: 20111229
  Transmission Date: 20120608
  Serious: Yes (Hospitalization, Other)
  Sender: FDA-Public Use
  Company Number: CA-ROCHE-1003263

PATIENT
  Sex: Female

DRUGS (8)
  1. BOTOX [Concomitant]
  2. XOLAIR [Suspect]
     Indication: ASTHMA
     Route: 058
     Dates: start: 20110811
  3. PREDNISONE TAB [Concomitant]
  4. THEOPHYLLINE [Concomitant]
  5. ADVAIR DISKUS 100/50 [Concomitant]
  6. SPIRIVA [Concomitant]
  7. METHACHOLINE CHLORIDE [Suspect]
     Indication: PRODUCT USED FOR UNKNOWN INDICATION
     Route: 065
  8. MOMETASONE FUROATE [Concomitant]
     Route: 045

REACTIONS (4)
  - ASTHMA [None]
  - FATIGUE [None]
  - RESPIRATORY FAILURE [None]
  - DYSPNOEA [None]
